FAERS Safety Report 7875182-X (Version None)
Quarter: 2011Q4

REPORT INFORMATION
  Report Type: 
  Country: None (occurrence: None)
  Receive Date: 20111031
  Receipt Date: 20111021
  Transmission Date: 20120403
  Serious: No
  Sender: FDA-Public Use
  Company Number: US-BIOGENIDEC-2011BI040379

PATIENT
  Age: 48 Year
  Sex: Female

DRUGS (2)
  1. MOTRIN [Concomitant]
     Indication: PREMEDICATION
  2. AVONEX [Suspect]
     Indication: MULTIPLE SCLEROSIS
     Route: 030
     Dates: start: 20050819

REACTIONS (5)
  - MIGRAINE [None]
  - FEELING OF BODY TEMPERATURE CHANGE [None]
  - POLYMENORRHOEA [None]
  - CRYING [None]
  - HEADACHE [None]
